FAERS Safety Report 8549058-9 (Version None)
Quarter: 2012Q3

REPORT INFORMATION
  Report Type: 
  Country: None (occurrence: None)
  Receive Date: 20120730
  Receipt Date: 20120725
  Transmission Date: 20120928
  Serious: Yes (Death)
  Sender: FDA-Public Use
  Company Number: US-PFIZER INC-2012181044

PATIENT
  Sex: Male

DRUGS (2)
  1. SUTENT [Suspect]
     Indication: RENAL CANCER
  2. SUTENT [Suspect]
     Indication: NON-RENAL CELL CARCINOMA OF KIDNEY
     Dosage: 50 MG, UNK
     Dates: start: 20120626, end: 20120626

REACTIONS (2)
  - DISEASE PROGRESSION [None]
  - NON-RENAL CELL CARCINOMA OF KIDNEY [None]
